FAERS Safety Report 15722093 (Version 1)
Quarter: 2018Q4

REPORT INFORMATION
  Report Type: Spontaneous
  Country: GB (occurrence: GB)
  Receive Date: 20181214
  Receipt Date: 20181214
  Transmission Date: 20190205
  Serious: Yes (Life-Threatening)
  Sender: FDA-Public Use
  Company Number: GB-TEVA-2018-GB-986661

PATIENT
  Age: 47 Year
  Sex: Female
  Weight: 97 kg

DRUGS (12)
  1. LANSOPRAZOLE. [Concomitant]
     Active Substance: LANSOPRAZOLE
     Dosage: 1 DOSAGE FORMS DAILY;
     Dates: start: 20180219
  2. DUORESP SPIROMAX [Concomitant]
     Active Substance: BUDESONIDE\FORMOTEROL
     Dosage: 2 DOSAGE FORMS DAILY;
     Dates: start: 20180219
  3. ACETAMINOPHEN AND CODEINE [Concomitant]
     Active Substance: ACETAMINOPHEN\CODEINE PHOSPHATE
     Dosage: 2 FOUR TIMES A DAY.
     Dates: start: 20180219, end: 20181006
  4. COCODAMOL [Concomitant]
     Active Substance: ACETAMINOPHEN\CODEINE PHOSPHATE
     Dosage: 8 DOSAGE FORMS DAILY;
     Dates: start: 20180907, end: 20180924
  5. BACLOFEN. [Concomitant]
     Active Substance: BACLOFEN
     Dosage: 3 DOSAGE FORMS DAILY;
     Dates: start: 20180219
  6. BRICANYL [Concomitant]
     Active Substance: TERBUTALINE SULFATE
     Route: 055
     Dates: start: 20180219
  7. DIPROBASE [Concomitant]
     Active Substance: CHLOROCRESOL
     Dates: start: 20180817
  8. NEURONTIN [Concomitant]
     Active Substance: GABAPENTIN
     Dosage: 3 MORNING 2 EVENING  3 TO BE TAKEN EACH NIGHT
     Dates: start: 20180219
  9. PHENOXYMETHYLPENICILLIN [Suspect]
     Active Substance: PENICILLIN V
     Dates: start: 20181116
  10. NAPROXEN. [Concomitant]
     Active Substance: NAPROXEN
     Dosage: 2 DOSAGE FORMS DAILY;
     Dates: start: 20180219
  11. MEBEVERINE HYDROCHLORIDE [Concomitant]
     Active Substance: MEBEVERINE HYDROCHLORIDE
     Dosage: 3 DOSAGE FORMS DAILY;
     Dates: start: 20180219
  12. VOLTAROL [Concomitant]
     Active Substance: DICLOFENAC SODIUM
     Dosage: 3 TIMES/DAY WHEN REQUIRED
     Dates: start: 20180219

REACTIONS (3)
  - Hypersensitivity [Unknown]
  - Swelling [Unknown]
  - Vomiting [Unknown]

NARRATIVE: CASE EVENT DATE: 20181116
